FAERS Safety Report 17825802 (Version 1)
Quarter: 2020Q2

REPORT INFORMATION
  Report Type: Spontaneous
  Country: BR (occurrence: BR)
  Receive Date: 20200526
  Receipt Date: 20200526
  Transmission Date: 20200714
  Serious: Yes (Other)
  Sender: FDA-Public Use
  Company Number: BR-PFIZER INC-2020204736

PATIENT
  Age: 90 Year
  Sex: Female
  Weight: 71.8 kg

DRUGS (22)
  1. CYMBALTA [Concomitant]
     Active Substance: DULOXETINE HYDROCHLORIDE
     Dosage: 30 MG, 1X/DAY
     Route: 048
     Dates: start: 20200217, end: 20200221
  2. RIVOTRIL [Concomitant]
     Active Substance: CLONAZEPAM
     Dosage: 0.25 MG, 1X/DAY
     Route: 048
     Dates: start: 20200217, end: 20200220
  3. CENTRUM SELECT [Concomitant]
     Active Substance: VITAMINS
     Dosage: UNK, 1X/DAY
  4. ADDERA D3 [Concomitant]
     Active Substance: CHOLECALCIFEROL
     Dosage: 1000 IU, 1X/DAY
  5. VELIJA [Concomitant]
     Active Substance: DULOXETINE HYDROCHLORIDE
     Dosage: 60 MG, ALTERNATE DAY (EVERY 48HOURS)
  6. ANORO [Concomitant]
     Active Substance: UMECLIDINIUM BROMIDE\VILANTEROL TRIFENATATE
     Dosage: 62.5/25MCG, 1X/DAY
  7. STRIVERDI RESPIMAT [Concomitant]
     Active Substance: OLODATEROL HYDROCHLORIDE
     Dosage: 2 DF, 1X/DAY (2 PUFFS 1X/DAY)
  8. SEROQUEL [Concomitant]
     Active Substance: QUETIAPINE FUMARATE
     Dosage: 37.5 MG, 1X/DAY (25 AND 12.5MG)
     Route: 048
     Dates: start: 20200217, end: 20200221
  9. ALLEGRA [Concomitant]
     Active Substance: FEXOFENADINE HYDROCHLORIDE
     Dosage: 120 MG, 1X/DAY
     Dates: start: 20200215
  10. TAZOCIN [Suspect]
     Active Substance: PIPERACILLIN SODIUM\TAZOBACTAM SODIUM
     Indication: ANTIBIOTIC PROPHYLAXIS
     Dosage: 4.5 G, 3X/DAY (EVERY 8HOURS)
     Route: 042
     Dates: start: 20200215, end: 20200218
  11. RIVOTRIL [Concomitant]
     Active Substance: CLONAZEPAM
     Dosage: 0.5 MG, DAILY
  12. ATACAND [Concomitant]
     Active Substance: CANDESARTAN CILEXETIL
     Dosage: 16/ 12.5 MG 1X/DAY
  13. PREGABALIN. [Concomitant]
     Active Substance: PREGABALIN
     Dosage: 75 MG, 1X/DAY
  14. CEWIN [Concomitant]
     Active Substance: ASCORBIC ACID
     Dosage: 500 MG, 1X/DAY
  15. ALDACTONE [Concomitant]
     Active Substance: SPIRONOLACTONE
     Dosage: 25 MG, 1X/DAY
  16. HYLO GEL [Concomitant]
     Dosage: 1 DROP, 4X/DAY
  17. DEXILANT [Concomitant]
     Active Substance: DEXLANSOPRAZOLE
     Dosage: 30 MG, 1X/DAY
  18. AZORGA [Concomitant]
     Active Substance: BRINZOLAMIDE\TIMOLOL MALEATE
     Dosage: 1 DROP, 2X/DAY
  19. CLEXANE [Concomitant]
     Active Substance: ENOXAPARIN SODIUM
     Dosage: 40 MG, 1X/DAY
     Route: 058
     Dates: start: 20200217, end: 20200220
  20. LYRICA [Concomitant]
     Active Substance: PREGABALIN
     Dosage: 75 MG, 1X/DAY
     Dates: start: 20200217, end: 20200221
  21. LABIRIN [Concomitant]
     Active Substance: BETAHISTINE
     Dosage: 24 MG, 1X/DAY
  22. LUFTAL [SIMETICONE] [Concomitant]
     Dosage: 30 DROP, 2X/DAY (IN THE MORNING/AFTERNOON)
     Route: 048
     Dates: start: 20200217, end: 20200221

REACTIONS (5)
  - Dermatitis allergic [Recovered/Resolved]
  - Burning sensation [Recovered/Resolved]
  - Rash [Recovered/Resolved]
  - Body temperature decreased [Recovered/Resolved]
  - Pruritus [Recovered/Resolved]

NARRATIVE: CASE EVENT DATE: 20200217
